FAERS Safety Report 17150857 (Version 1)
Quarter: 2019Q4

REPORT INFORMATION
  Report Type: Spontaneous
  Country: JP (occurrence: JP)
  Receive Date: 20191213
  Receipt Date: 20191213
  Transmission Date: 20200122
  Serious: Yes (Life-Threatening, Hospitalization, Other)
  Sender: FDA-Public Use
  Company Number: JP-SCIEGEN PHARMACEUTICALS INC-2019SCILIT00374

PATIENT
  Age: 73 Year
  Sex: Male

DRUGS (14)
  1. GLIMEPIRIDE. [Suspect]
     Active Substance: GLIMEPIRIDE
  2. CANDESARTAN. [Interacting]
     Active Substance: CANDESARTAN
  3. FAT EMULSION NOS [Interacting]
     Active Substance: EGG PHOSPHOLIPIDS\SAFFLOWER OIL\SOYBEAN OIL
  4. NORADRENALINE [Interacting]
     Active Substance: NOREPINEPHRINE
  5. DOPAMINE [Interacting]
     Active Substance: DOPAMINE HYDROCHLORIDE
  6. AMLODIPINE [Suspect]
     Active Substance: AMLODIPINE BESYLATE
  7. SODIUM CARBOHYDRATE (SODIUM BICARBONATE) [Interacting]
     Active Substance: SODIUM BICARBONATE
  8. INSULIN [Interacting]
     Active Substance: INSULIN NOS
  9. GLUCAGON. [Interacting]
     Active Substance: GLUCAGON
  10. KCL [Interacting]
     Active Substance: POTASSIUM CHLORIDE
  11. POTASSIUM GLUCONATE [Interacting]
     Active Substance: POTASSIUM GLUCONATE
  12. ALOGLIPTIN. [Suspect]
     Active Substance: ALOGLIPTIN
  13. METFORMIN HYDROCHLORIDETABLETS [Suspect]
     Active Substance: METFORMIN HYDROCHLORIDE
  14. CALCIUM GLUCONATE. [Interacting]
     Active Substance: CALCIUM GLUCONATE

REACTIONS (12)
  - Heart rate decreased [Recovering/Resolving]
  - Hypoglycaemia [Recovering/Resolving]
  - Overdose [Recovered/Resolved]
  - Toxicity to various agents [Recovered/Resolved]
  - Lactic acidosis [Recovering/Resolving]
  - Drug interaction [Unknown]
  - Blood creatinine increased [Recovered/Resolved]
  - Altered state of consciousness [Recovering/Resolving]
  - Body temperature decreased [Recovering/Resolving]
  - Vomiting [Unknown]
  - Hypokalaemia [Recovering/Resolving]
  - Hypotension [Recovering/Resolving]
